FAERS Safety Report 10160038 (Version 1)
Quarter: 2014Q2

REPORT INFORMATION
  Report Type: Spontaneous
  Country: SG (occurrence: SG)
  Receive Date: 20140508
  Receipt Date: 20140508
  Transmission Date: 20141212
  Serious: Yes (Hospitalization, Other)
  Sender: FDA-Public Use
  Company Number: SG-ABBVIE-14P-141-1235324-00

PATIENT
  Age: 72 Year
  Sex: Female

DRUGS (3)
  1. KLACID [Suspect]
     Indication: PRODUCT USED FOR UNKNOWN INDICATION
  2. COLCHICINE [Interacting]
     Indication: PRODUCT USED FOR UNKNOWN INDICATION
  3. LOVASTATIN [Interacting]
     Indication: PRODUCT USED FOR UNKNOWN INDICATION

REACTIONS (4)
  - Lethargy [Unknown]
  - Drug interaction [Unknown]
  - Pain [Unknown]
  - Rhabdomyolysis [Unknown]
